FAERS Safety Report 18901071 (Version 1)
Quarter: 2021Q1

REPORT INFORMATION
  Report Type: Spontaneous
  Country: US (occurrence: US)
  Receive Date: 20210217
  Receipt Date: 20210217
  Transmission Date: 20210420
  Serious: No
  Sender: FDA-Public Use
  Company Number: US-GLAXOSMITHKLINE-USCH2021007127

PATIENT
  Age: 45 Year
  Sex: Male

DRUGS (1)
  1. ADVIL LIQUI?GELS [Suspect]
     Active Substance: IBUPROFEN
     Indication: ARTHRALGIA
     Dosage: UNK

REACTIONS (5)
  - Cough [Unknown]
  - Drug hypersensitivity [Unknown]
  - Chest pain [Unknown]
  - Pruritus [Unknown]
  - Swelling face [Recovering/Resolving]
